FAERS Safety Report 7966386-6 (Version None)
Quarter: 2011Q4

REPORT INFORMATION
  Report Type: 
  Country: None (occurrence: None)
  Receive Date: 20111208
  Receipt Date: 20111128
  Transmission Date: 20120403
  Serious: Yes (Other)
  Sender: FDA-Public Use
  Company Number: US-CELGENEUS-163-21880-11082103

PATIENT
  Sex: Female
  Weight: 105.4 kg

DRUGS (13)
  1. ZOMETA [Concomitant]
     Dosage: 4 MILLIGRAM
     Route: 065
  2. DEXAMETHASONE [Concomitant]
     Dosage: 5
     Route: 048
  3. REVLIMID [Suspect]
     Indication: MULTIPLE MYELOMA
     Dosage: 10 MILLIGRAM
     Route: 048
     Dates: start: 20090901
  4. ASPIRIN [Concomitant]
     Route: 065
  5. CALCIUM [Concomitant]
     Route: 065
  6. DEXAMETHASONE [Concomitant]
     Dosage: 20 MILLIGRAM
     Route: 048
     Dates: start: 20090901
  7. POTASSIUM CHLORIDE [Concomitant]
     Dosage: 10 MILLIEQUIVALENTS
     Route: 048
     Dates: start: 20100101
  8. MULTI-VITAMINS [Concomitant]
     Route: 065
  9. POTASSIUM ACETATE [Concomitant]
     Dosage: 10 MILLIEQUIVALENTS
     Route: 048
  10. ZOLEDRONIC ACID [Concomitant]
     Dosage: 4 MILLIGRAM
     Route: 041
  11. VITAMIN D [Concomitant]
     Route: 065
  12. FLECTOR [Concomitant]
     Route: 062
  13. AMOXICILLIN [Concomitant]
     Dosage: 500-125MG
     Route: 048

REACTIONS (2)
  - BASAL CELL CARCINOMA [None]
  - DEEP VEIN THROMBOSIS [None]
